FAERS Safety Report 15542515 (Version 1)
Quarter: 2018Q4

REPORT INFORMATION
  Report Type: Spontaneous
  Country: BR (occurrence: BR)
  Receive Date: 20181023
  Receipt Date: 20181023
  Transmission Date: 20190205
  Serious: Yes (Other)
  Sender: FDA-Public Use
  Company Number: BR-PFIZER INC-2018405628

PATIENT
  Age: 71 Year
  Sex: Male

DRUGS (6)
  1. LANTUS [Concomitant]
     Active Substance: INSULIN GLARGINE
     Dosage: UNK
     Dates: start: 201808
  2. RENITEC [ENALAPRIL MALEATE] [Concomitant]
     Dosage: UNK
     Dates: start: 1998
  3. METFORMIN [Concomitant]
     Active Substance: METFORMIN HYDROCHLORIDE
     Dosage: UNK
     Dates: start: 1998
  4. LORAX [Suspect]
     Active Substance: LORAZEPAM
     Indication: DEPRESSION
     Dosage: 2 TABLETS OF 2 MG DAILY
     Dates: start: 1998, end: 201809
  5. LORAX [Suspect]
     Active Substance: LORAZEPAM
     Indication: HYPERTENSION
     Dosage: 4 TABLETS OF 1 MG DAILY
     Dates: start: 201809
  6. NESINA [Concomitant]
     Active Substance: ALOGLIPTIN BENZOATE
     Dosage: UNK

REACTIONS (5)
  - Palpitations [Recovered/Resolved]
  - Diabetes mellitus [Recovered/Resolved]
  - Vision blurred [Recovered/Resolved]
  - Malaise [Recovered/Resolved]
  - Drug dependence [Not Recovered/Not Resolved]

NARRATIVE: CASE EVENT DATE: 1998
